FAERS Safety Report 21346370 (Version 4)
Quarter: 2024Q2

REPORT INFORMATION
  Report Type: Spontaneous
  Country: US (occurrence: US)
  Receive Date: 20220917
  Receipt Date: 20240514
  Transmission Date: 20240715
  Serious: Yes (Hospitalization, Other)
  Sender: FDA-Public Use
  Company Number: US-Accord-262194

PATIENT
  Age: 89 Year
  Sex: Male
  Weight: 87.6 kg

DRUGS (32)
  1. GEMCITABINE HYDROCHLORIDE [Suspect]
     Active Substance: GEMCITABINE HYDROCHLORIDE
     Indication: Diffuse large B-cell lymphoma stage IV
     Dosage: 1Q2W, C1D1
     Route: 042
     Dates: start: 20220329, end: 20220329
  2. OXALIPLATIN [Suspect]
     Active Substance: OXALIPLATIN
     Indication: Diffuse large B-cell lymphoma stage IV
     Route: 042
     Dates: start: 20220329, end: 20220329
  3. EPCORITAMAB [Concomitant]
     Active Substance: EPCORITAMAB
     Indication: Diffuse large B-cell lymphoma stage IV
     Dosage: PRIMING DOSE, SINGLE, C1D1
     Route: 058
     Dates: start: 20220329, end: 20220329
  4. DIPHENHYDRAMINE [Concomitant]
     Active Substance: DIPHENHYDRAMINE
     Indication: Premedication
     Route: 048
     Dates: start: 20220329, end: 20220329
  5. ACETAMINOPHEN [Concomitant]
     Active Substance: ACETAMINOPHEN
     Indication: Premedication
     Route: 048
     Dates: start: 20220329, end: 20220329
  6. ACYCLOVIR [Concomitant]
     Active Substance: ACYCLOVIR
     Dates: start: 20220107
  7. ALBUTEROL [Concomitant]
     Active Substance: ALBUTEROL
     Dates: start: 20220330, end: 20220331
  8. ALLOPURINOL [Concomitant]
     Active Substance: ALLOPURINOL
     Dates: start: 20220315
  9. ATORVASTATIN [Concomitant]
     Active Substance: ATORVASTATIN
     Dates: start: 20220325, end: 20220422
  10. CALCITONIN [Concomitant]
     Active Substance: CALCITONIN
     Dates: start: 20220325
  11. DELTASONE [Concomitant]
     Active Substance: PREDNISONE
     Dates: start: 20220107
  12. FLUOROURACIL [Concomitant]
     Active Substance: FLUOROURACIL
     Dates: start: 20220107
  13. HYDROCORTISONE [Concomitant]
     Active Substance: HYDROCORTISONE
     Dates: start: 20220107
  14. LIDOCAINE [Concomitant]
     Active Substance: LIDOCAINE
     Dates: start: 20220329, end: 20220426
  15. MIRALAX [Concomitant]
     Active Substance: POLYETHYLENE GLYCOL 3350
     Dates: start: 20220328
  16. MORPHINE [Concomitant]
     Active Substance: MORPHINE
     Dates: start: 20220410, end: 20220420
  17. PANTOPRAZOLE [Concomitant]
     Active Substance: PANTOPRAZOLE
     Dates: start: 20220325, end: 20220331
  18. PROGESTERONE [Concomitant]
     Active Substance: PROGESTERONE
     Dates: start: 20220107
  19. SENNOSIDES A AND B [Concomitant]
     Active Substance: SENNOSIDES A AND B
     Dates: start: 20220328
  20. SILVADENE [Concomitant]
     Active Substance: SILVER SULFADIAZINE
     Dates: start: 20220107
  21. PREDNISONE [Concomitant]
     Active Substance: PREDNISONE
     Indication: Prophylaxis
     Route: 048
     Dates: start: 20220329, end: 20220331
  22. DECADRON [Concomitant]
     Active Substance: DEXAMETHASONE
     Indication: Prophylaxis
     Route: 042
     Dates: start: 20220329, end: 20220329
  23. DEXAMETHASONE [Concomitant]
     Active Substance: DEXAMETHASONE
     Indication: Prophylaxis
     Route: 042
     Dates: start: 20220415, end: 20220417
  24. PREDNISONE [Concomitant]
     Active Substance: PREDNISONE
     Dates: start: 20220325, end: 20220403
  25. SODIUM CHLORIDE [Concomitant]
     Active Substance: SODIUM CHLORIDE
     Dates: start: 20220325, end: 20220327
  26. DIPHENHYDRAMINE [Concomitant]
     Active Substance: DIPHENHYDRAMINE
     Indication: Premedication
     Route: 048
     Dates: start: 20220406, end: 20220406
  27. ACETAMINOPHEN [Concomitant]
     Active Substance: ACETAMINOPHEN
     Indication: Premedication
     Route: 048
     Dates: start: 20220406, end: 20220406
  28. ACETAMINOPHEN [Concomitant]
     Active Substance: ACETAMINOPHEN
     Dates: start: 2011
  29. EPCORITAMAB [Concomitant]
     Active Substance: EPCORITAMAB
     Indication: Diffuse large B-cell lymphoma stage IV
     Dosage: FULL DOSE, SINGLE
     Route: 058
     Dates: start: 20220418, end: 20220418
  30. PREDNISONE [Concomitant]
     Active Substance: PREDNISONE
     Indication: Prophylaxis
     Route: 048
     Dates: start: 20220401, end: 20220402
  31. PREDNISONE [Concomitant]
     Active Substance: PREDNISONE
     Indication: Prophylaxis
     Route: 048
     Dates: start: 20220406, end: 20220409
  32. EPCORITAMAB [Concomitant]
     Active Substance: EPCORITAMAB
     Indication: Diffuse large B-cell lymphoma stage IV
     Dosage: INTERMEDIATE DOSE, SINGLE
     Route: 058
     Dates: start: 20220406, end: 20220406

REACTIONS (1)
  - Febrile neutropenia [Recovered/Resolved]

NARRATIVE: CASE EVENT DATE: 20220410
